FAERS Safety Report 14692677 (Version 2)
Quarter: 2018Q2

REPORT INFORMATION
  Report Type: Report from Study
  Country: None (occurrence: US)
  Receive Date: 20180329
  Receipt Date: 20180403
  Transmission Date: 20180711
  Serious: Yes (Hospitalization)
  Sender: FDA-Public Use
  Company Number: US-ABBVIE-18K-163-2301248-00

PATIENT
  Age: 59 Year
  Sex: Female
  Weight: 63.56 kg

DRUGS (2)
  1. HUMIRA [Suspect]
     Active Substance: ADALIMUMAB
     Route: 058
     Dates: start: 201802
  2. HUMIRA [Suspect]
     Active Substance: ADALIMUMAB
     Indication: CROHN^S DISEASE
     Route: 058
     Dates: start: 2016, end: 201802

REACTIONS (11)
  - Dehydration [Recovered/Resolved]
  - Drug level decreased [Recovering/Resolving]
  - Gastrointestinal inflammation [Recovered/Resolved]
  - Diarrhoea [Recovered/Resolved]
  - Vomiting [Recovered/Resolved]
  - Bacterial food poisoning [Recovered/Resolved]
  - Gastroenteritis viral [Recovering/Resolving]
  - Immunodeficiency [Recovering/Resolving]
  - Weight decreased [Recovering/Resolving]
  - Blood potassium decreased [Recovering/Resolving]
  - Fatigue [Recovering/Resolving]

NARRATIVE: CASE EVENT DATE: 20171210
